FAERS Safety Report 17526914 (Version 1)
Quarter: 2020Q1

REPORT INFORMATION
  Report Type: Report from Study
  Country: BR (occurrence: BR)
  Receive Date: 20200310
  Receipt Date: 20200310
  Transmission Date: 20200409
  Serious: Yes (Other)
  Sender: FDA-Public Use
  Company Number: BR-BIOGEN-2020BI00847527

PATIENT
  Age: 55 Year
  Sex: Female

DRUGS (6)
  1. AVONEX PEN [Suspect]
     Active Substance: INTERFERON BETA-1A
     Indication: MULTIPLE SCLEROSIS
     Route: 030
     Dates: start: 20040601
  2. AVONEX PEN [Suspect]
     Active Substance: INTERFERON BETA-1A
  3. AMOXICILLIN. [Suspect]
     Active Substance: AMOXICILLIN
     Route: 065
  4. AVONEX PEN [Suspect]
     Active Substance: INTERFERON BETA-1A
  5. AVONEX PEN [Suspect]
     Active Substance: INTERFERON BETA-1A
  6. AMOXICILLIN. [Suspect]
     Active Substance: AMOXICILLIN
     Indication: PRODUCT USED FOR UNKNOWN INDICATION
     Route: 065
     Dates: start: 201906, end: 201906

REACTIONS (4)
  - Urinary tract infection [Recovered/Resolved]
  - Root canal infection [Recovered/Resolved]
  - Tooth fracture [Recovered/Resolved]
  - Decreased immune responsiveness [Recovered/Resolved]

NARRATIVE: CASE EVENT DATE: 202002
